FAERS Safety Report 5549935-7 (Version None)
Quarter: 2007Q4

REPORT INFORMATION
  Report Type: 
  Country: None (occurrence: None)
  Receive Date: 20071128
  Receipt Date: 20070213
  Transmission Date: 20080405
  Serious: Yes (Hospitalization)
  Sender: FDA-Public Use
  Company Number: 2007012130

PATIENT
  Age: 60 Year
  Sex: Female
  Weight: 104.3 kg

DRUGS (9)
  1. LIPITOR [Suspect]
     Indication: BLOOD CHOLESTEROL INCREASED
     Dosage: (10 MG)
  2. CHANTIX [Suspect]
     Indication: SMOKING CESSATION THERAPY
     Dosage: 2 MG (1 MG, 2 IN 1 D)
     Dates: start: 20070201
  3. CECLOR [Suspect]
     Indication: SINUSITIS
  4. DILANTIN [Concomitant]
  5. ATENOLOL [Concomitant]
  6. CLARITIN [Concomitant]
  7. SPIRIVA [Concomitant]
  8. FORADIL [Concomitant]
  9. ALBUTEROL [Concomitant]

REACTIONS (6)
  - BURNING SENSATION [None]
  - LOW DENSITY LIPOPROTEIN INCREASED [None]
  - NAUSEA [None]
  - PRURITUS [None]
  - SINUSITIS [None]
  - URTICARIA [None]
